FAERS Safety Report 25761500 (Version 1)
Quarter: 2025Q3

REPORT INFORMATION
  Report Type: Spontaneous
  Country: US (occurrence: US)
  Receive Date: 20250904
  Receipt Date: 20250904
  Transmission Date: 20251021
  Serious: No
  Sender: MEDEXUS PHARMA
  Company Number: US-MEDEXUS PHARMA, INC.-2024MED00517

PATIENT
  Sex: Female

DRUGS (1)
  1. RASUVO [Suspect]
     Active Substance: METHOTREXATE SODIUM
     Dates: start: 2022

REACTIONS (4)
  - Product dose omission issue [Unknown]
  - Tremor [Not Recovered/Not Resolved]
  - Road traffic accident [Unknown]
  - Device delivery system issue [Unknown]
